FAERS Safety Report 10469147 (Version 1)
Quarter: 2014Q3

REPORT INFORMATION
  Report Type: Spontaneous
  Country: IN (occurrence: None)
  Receive Date: 20140919
  Receipt Date: 20140919
  Transmission Date: 20150326
  Serious: Yes (Other)
  Sender: FDA-Public Use
  Company Number: IN-ZYDUS-005014

PATIENT
  Age: 7 Day
  Sex: Male

DRUGS (1)
  1. TELMISARTAN (TELMISARTAN) [Suspect]
     Active Substance: TELMISARTAN
     Route: 064

REACTIONS (9)
  - Foetal exposure during pregnancy [None]
  - Caesarean section [None]
  - Renal failure acute [None]
  - Renal tubular disorder [None]
  - Respiratory distress [None]
  - Oligohydramnios [None]
  - Renal aplasia [None]
  - Renal failure [None]
  - Peritoneal dialysis [None]
